FAERS Safety Report 5886769-8 (Version None)
Quarter: 2008Q3

REPORT INFORMATION
  Report Type: 
  Country: None (occurrence: None)
  Receive Date: 20080917
  Receipt Date: 20080916
  Transmission Date: 20090109
  Serious: Yes (Other)
  Sender: FDA-Public Use
  Company Number: JP-BRISTOL-MYERS SQUIBB COMPANY-14337232

PATIENT
  Age: 86 Year
  Sex: Female

DRUGS (7)
  1. DESYREL [Suspect]
     Indication: DEPRESSION
     Route: 048
  2. SOLANAX [Suspect]
     Route: 048
  3. LUDIOMEL [Suspect]
     Indication: DEPRESSION
     Dates: start: 20070201
  4. COLONEL [Suspect]
     Route: 048
  5. TOLEDOMIN [Suspect]
     Route: 048
     Dates: start: 20080513
  6. DEXART [Concomitant]
     Dates: end: 20080313
  7. ARTZ [Concomitant]

REACTIONS (3)
  - DYSPHAGIA [None]
  - HYPOKALAEMIA [None]
  - URINARY RETENTION [None]
